FAERS Safety Report 7343379-3 (Version None)
Quarter: 2011Q1

REPORT INFORMATION
  Report Type: 
  Country: None (occurrence: None)
  Receive Date: 20110310
  Receipt Date: 20110221
  Transmission Date: 20110831
  Serious: Yes (Other)
  Sender: FDA-Public Use
  Company Number: PHHY2011US16533

PATIENT

DRUGS (2)
  1. METOPROLOL [Suspect]
     Indication: HEART RATE
     Dosage: MATERNAL DOSE: 5 MG, THREE REPEATED DOSES EVERY 5 MINUTES
     Route: 042
  2. METOPROLOL [Suspect]
     Dosage: 25 MG, BID
     Route: 048

REACTIONS (2)
  - DRUG EXPOSURE DURING PREGNANCY [None]
  - PREMATURE BABY [None]
